FAERS Safety Report 8090436-2 (Version None)
Quarter: 2012Q1

REPORT INFORMATION
  Report Type: 
  Country: None (occurrence: None)
  Receive Date: 20120129
  Receipt Date: 20111121
  Transmission Date: 20120608
  Serious: No
  Sender: FDA-Public Use
  Company Number: US-ABBOTT-11P-163-0876001-00

PATIENT
  Sex: Male

DRUGS (2)
  1. METHOTREXATE [Concomitant]
     Indication: RHEUMATOID ARTHRITIS
  2. HUMIRA [Suspect]
     Indication: RHEUMATOID ARTHRITIS
     Route: 058
     Dates: start: 20110901

REACTIONS (6)
  - THROAT IRRITATION [None]
  - VIRAL INFECTION [None]
  - NASOPHARYNGITIS [None]
  - OROPHARYNGEAL PAIN [None]
  - COUGH [None]
  - NASAL CONGESTION [None]
